FAERS Safety Report 17943004 (Version 2)
Quarter: 2020Q3

REPORT INFORMATION
  Report Type: Spontaneous
  Country: BR (occurrence: BR)
  Receive Date: 20200625
  Receipt Date: 20200707
  Transmission Date: 20201103
  Serious: Yes (Hospitalization)
  Sender: FDA-Public Use
  Company Number: BR-ROCHE-2627599

PATIENT
  Age: 71 Year
  Sex: Female
  Weight: 84 kg

DRUGS (21)
  1. DIPYRONE [Concomitant]
     Active Substance: DIPYRONE
  2. METHYLPREDNISOLONE. [Concomitant]
     Active Substance: METHYLPREDNISOLONE
  3. SODIUM BICARBONATE. [Concomitant]
     Active Substance: SODIUM BICARBONATE
  4. FENTANYL. [Concomitant]
     Active Substance: FENTANYL
  5. ACTEMRA [Suspect]
     Active Substance: TOCILIZUMAB
     Indication: VIRAL INFECTION
     Dosage: 700 MG (8MG/KG) INTRAVENOUS
     Route: 042
     Dates: start: 20200417, end: 20200421
  6. TOCOPHEROL [Concomitant]
     Active Substance: TOCOPHEROL
  7. MIDAZOLAM. [Concomitant]
     Active Substance: MIDAZOLAM
  8. TEICOPLANIN [Concomitant]
     Active Substance: TEICOPLANIN
  9. HEPARIN [Concomitant]
     Active Substance: HEPARIN SODIUM
  10. FUROSEMIDE. [Concomitant]
     Active Substance: FUROSEMIDE
  11. LIDOCAINE. [Concomitant]
     Active Substance: LIDOCAINE
  12. POTASSIUM [Concomitant]
     Active Substance: POTASSIUM
  13. SODIUM CHLORIDE. [Concomitant]
     Active Substance: SODIUM CHLORIDE
  14. PROPOFOL. [Concomitant]
     Active Substance: PROPOFOL
  15. RISPERIDONE. [Concomitant]
     Active Substance: RISPERIDONE
  16. ROFLUMILAST. [Concomitant]
     Active Substance: ROFLUMILAST
  17. CISATRACURIUM BESILATE [Concomitant]
     Active Substance: CISATRACURIUM BESYLATE
  18. PANTOPRAZOLE [Concomitant]
     Active Substance: PANTOPRAZOLE
  19. PARACETAMOL [Concomitant]
     Active Substance: ACETAMINOPHEN
  20. HYDROCORTISONE. [Concomitant]
     Active Substance: HYDROCORTISONE
  21. PRAMIPEXOLE. [Concomitant]
     Active Substance: PRAMIPEXOLE

REACTIONS (6)
  - Oral neoplasm [Recovered/Resolved]
  - Intentional product use issue [Unknown]
  - Off label use [Unknown]
  - Infection [Recovered/Resolved]
  - Herpes virus infection [Recovered/Resolved]
  - Blood triglycerides increased [Recovered/Resolved]

NARRATIVE: CASE EVENT DATE: 20200427
